FAERS Safety Report 21897146 (Version 1)
Quarter: 2023Q1

REPORT INFORMATION
  Report Type: Report from Study
  Country: JP (occurrence: JP)
  Receive Date: 20230123
  Receipt Date: 20230123
  Transmission Date: 20230418
  Serious: Yes (Other)
  Sender: FDA-Public Use
  Company Number: JP-ORPHANEU-2021005039

PATIENT

DRUGS (32)
  1. CYSTADANE [Suspect]
     Active Substance: BETAINE
     Indication: Homocystinuria
     Dosage: 0.65 GRAM DAILY, BID
     Route: 048
     Dates: start: 20151222, end: 20160125
  2. CYSTADANE [Suspect]
     Active Substance: BETAINE
     Dosage: 0.75 GRAM DAILY, BID
     Route: 048
     Dates: start: 20160126, end: 20160222
  3. CYSTADANE [Suspect]
     Active Substance: BETAINE
     Dosage: 1 GRAM DAILY, BID
     Route: 048
     Dates: start: 20160223, end: 20161003
  4. CYSTADANE [Suspect]
     Active Substance: BETAINE
     Dosage: 1.5 GRAM DAILY, BID
     Route: 048
     Dates: start: 20161004, end: 20200217
  5. CYSTADANE [Suspect]
     Active Substance: BETAINE
     Dosage: 2 GRAM DAILY, BID
     Route: 048
     Dates: start: 20200218
  6. LEVOCARNITINE HYDROCHLORIDE [Concomitant]
     Active Substance: LEVOCARNITINE HYDROCHLORIDE
     Indication: Product used for unknown indication
     Dosage: 750 MILLIGRAM, TID
     Route: 048
  7. BIOTIN [Concomitant]
     Active Substance: BIOTIN
     Indication: Product used for unknown indication
     Dosage: 0.1 MILLIGRAM, QD
     Route: 048
     Dates: start: 20151228
  8. FRESMIN S [HYDROXOCOBALAMIN] [Concomitant]
     Indication: Product used for unknown indication
     Dosage: 1000 MICROGRAM, QD
     Route: 042
  9. LAC-B GRANULAR POWDER N [Concomitant]
     Indication: Disease complication
     Dosage: 1 GRAM, TID
     Route: 048
     Dates: start: 20170131, end: 20170214
  10. LAC-B GRANULAR POWDER N [Concomitant]
     Dosage: 1 GRAM, TID
     Route: 048
     Dates: start: 20170604, end: 20170621
  11. LAC-B GRANULAR POWDER N [Concomitant]
     Dosage: 1.5 GRAM, TID
     Route: 048
     Dates: end: 20170711
  12. LAC-B GRANULAR POWDER N [Concomitant]
     Dosage: 1.5 GRAM, TID
     Route: 048
     Dates: start: 20171107
  13. TEPRENONE [Concomitant]
     Active Substance: TEPRENONE
     Indication: Ill-defined disorder
     Dosage: 20 MILLIGRAM, QD
     Route: 048
     Dates: start: 20190226
  14. MOSAPRIDE CITRATE [Concomitant]
     Active Substance: MOSAPRIDE CITRATE
     Indication: Homocystinuria
     Dosage: 1.5 MILLIGRAM, QD
     Route: 048
     Dates: start: 20190226
  15. MOSAPRIDE CITRATE [Concomitant]
     Active Substance: MOSAPRIDE CITRATE
     Indication: Vitamin B12 deficiency
  16. LEVOCARNITINE [Concomitant]
     Active Substance: LEVOCARNITINE
     Indication: Product used for unknown indication
     Dosage: 7.5 MILLILITER, TID
     Route: 048
     Dates: end: 20160711
  17. LEVOCARNITINE [Concomitant]
     Active Substance: LEVOCARNITINE
     Dosage: 10 MILLILITER, TID
     Route: 048
     Dates: start: 20160712, end: 20160914
  18. LEVOCARNITINE [Concomitant]
     Active Substance: LEVOCARNITINE
     Dosage: 15 MILLILITER, TID
     Route: 048
     Dates: start: 20160915, end: 20161220
  19. LEVOCARNITINE [Concomitant]
     Active Substance: LEVOCARNITINE
     Dosage: 5 MILLILITER, QD
     Route: 048
     Dates: start: 20161221
  20. LEVOCARNITINE [Concomitant]
     Active Substance: LEVOCARNITINE
     Dosage: 15 MILLILITER, TID
     Route: 048
  21. BIOTIN [Concomitant]
     Active Substance: BIOTIN
     Indication: Product used for unknown indication
     Dosage: 0.1 MILLILITER, QD
     Route: 048
  22. TEGRETOL [Concomitant]
     Active Substance: CARBAMAZEPINE
     Indication: Product used for unknown indication
     Dosage: 25 MILLIGRAM, BID
     Route: 048
  23. TEGRETOL [Concomitant]
     Active Substance: CARBAMAZEPINE
     Indication: Disease complication
     Dosage: 40 MILLIGRAM, BID
     Route: 048
     Dates: end: 20160716
  24. TEGRETOL [Concomitant]
     Active Substance: CARBAMAZEPINE
     Dosage: 30 MILLIGRAM, BID
     Route: 048
     Dates: start: 20160717, end: 20160914
  25. TEGRETOL [Concomitant]
     Active Substance: CARBAMAZEPINE
     Dosage: 20 MILLIGRAM, BID
     Route: 048
     Dates: start: 20160915
  26. TEGRETOL [Concomitant]
     Active Substance: CARBAMAZEPINE
     Dosage: 10 MILLIGRAM, QD
     Route: 048
     Dates: start: 20170130, end: 20170208
  27. CARBOCYSTEINE [Concomitant]
     Active Substance: CARBOCYSTEINE
     Indication: Disease complication
     Dosage: 300 MILLIGRAM, BID
     Route: 048
     Dates: start: 20160924, end: 20160930
  28. CARBOCYSTEINE [Concomitant]
     Active Substance: CARBOCYSTEINE
     Dosage: 300 MILLIGRAM, BID
     Route: 048
     Dates: start: 20161219, end: 20161230
  29. CARBOCYSTEINE [Concomitant]
     Active Substance: CARBOCYSTEINE
     Dosage: 360 MILLIGRAM, BID
     Route: 048
     Dates: start: 20191029
  30. AMBROXOL HYDROCHLORIDE [Concomitant]
     Active Substance: AMBROXOL HYDROCHLORIDE
     Indication: Disease complication
     Dosage: 9 MILLIGRAM, TID
     Route: 048
     Dates: start: 20161219, end: 20161230
  31. XYZAL [Concomitant]
     Active Substance: LEVOCETIRIZINE DIHYDROCHLORIDE
     Indication: Disease complication
     Dosage: 5 MILLILITER, BID
     Route: 048
     Dates: start: 20191029, end: 20191104
  32. XYZAL [Concomitant]
     Active Substance: LEVOCETIRIZINE DIHYDROCHLORIDE
     Dosage: 5 MILLILITER, BID
     Route: 048
     Dates: start: 20191119, end: 20191125

REACTIONS (2)
  - Beta haemolytic streptococcal infection [Recovered/Resolved]
  - Bacterial infection [Recovered/Resolved]

NARRATIVE: CASE EVENT DATE: 20200926
